FAERS Safety Report 20952433 (Version 1)
Quarter: 2022Q2

REPORT INFORMATION
  Report Type: Spontaneous
  Country: US (occurrence: None)
  Receive Date: 20220612
  Receipt Date: 20220612
  Transmission Date: 20220720
  Serious: No
  Sender: FDA-Public Use
  Company Number: None

PATIENT
  Age: 46 Year
  Sex: Female
  Weight: 63.9 kg

DRUGS (11)
  1. EMGALITY [Suspect]
     Active Substance: GALCANEZUMAB-GNLM
     Indication: Migraine
     Dosage: OTHER QUANTITY : 2 SYRINGE;?OTHER FREQUENCY : ONCE A MONTH DOSIN;?OTHER ROUTE : SUBCUTANEOUS INJECTI
     Route: 050
     Dates: start: 20220519, end: 20220519
  2. PROZAC [Concomitant]
     Active Substance: FLUOXETINE HYDROCHLORIDE
  3. MAXALT [Concomitant]
     Active Substance: RIZATRIPTAN BENZOATE
  4. ZOFRAN [Concomitant]
     Active Substance: ONDANSETRON HYDROCHLORIDE
  5. FIORICET [Concomitant]
     Active Substance: ACETAMINOPHEN\BUTALBITAL\CAFFEINE
  6. XANAX [Concomitant]
     Active Substance: ALPRAZOLAM
  7. PEPCID [Concomitant]
     Active Substance: FAMOTIDINE
  8. FLONASE [Concomitant]
     Active Substance: FLUTICASONE PROPIONATE
  9. TYLENOL [Concomitant]
     Active Substance: ACETAMINOPHEN
  10. MOTRIN [Concomitant]
     Active Substance: IBUPROFEN
  11. PSEUDOEPHEDRINE [Concomitant]
     Active Substance: PSEUDOEPHEDRINE

REACTIONS (5)
  - Panic reaction [None]
  - Anxiety [None]
  - Depression [None]
  - Crying [None]
  - Dissociative disorder [None]

NARRATIVE: CASE EVENT DATE: 20220612
